FAERS Safety Report 7606189 (Version 14)
Quarter: 2020Q2

REPORT INFORMATION
  Report Type: Report from Study
  Country: JP (occurrence: JP)
  Receive Date: 20100924
  Receipt Date: 20200407
  Transmission Date: 20200714
  Serious: Yes (Hospitalization)
  Sender: FDA-Public Use
  Company Number: JP-PFIZER INC-2010116381

PATIENT
  Age: 57 Year
  Sex: Male
  Weight: 52 kg

DRUGS (5)
  1. SUNITINIB MALATE. [Suspect]
     Active Substance: SUNITINIB MALATE
     Indication: PANCREATIC NEUROENDOCRINE TUMOUR
     Dosage: 37.5 MG, 1X/DAY
     Route: 048
     Dates: start: 20100824, end: 20100914
  2. NOVORAPID [Concomitant]
     Active Substance: INSULIN ASPART
     Indication: DIABETES MELLITUS
     Dosage: UNK
     Route: 058
     Dates: end: 20100914
  3. KERATINAMIN [Concomitant]
     Active Substance: UREA
     Indication: PALMAR-PLANTAR ERYTHRODYSAESTHESIA SYNDROME
     Dosage: SEVERAL TIMES DAILY
     Route: 061
     Dates: start: 20100823
  4. LANTUS [Concomitant]
     Active Substance: INSULIN GLARGINE
     Indication: DIABETES MELLITUS
     Dosage: UNK
     Route: 058
     Dates: end: 20100914
  5. FULMETA [Concomitant]
     Active Substance: MOMETASONE
     Indication: PALMAR-PLANTAR ERYTHRODYSAESTHESIA SYNDROME
     Dosage: SEVERAL TIMES DAILY
     Route: 061
     Dates: start: 20100906, end: 20100914

REACTIONS (2)
  - Seizure [Recovered/Resolved]
  - Loss of consciousness [Recovered/Resolved]

NARRATIVE: CASE EVENT DATE: 20100915
